FAERS Safety Report 12294011 (Version 2)
Quarter: 2016Q3

REPORT INFORMATION
  Report Type: Spontaneous
  Country: US (occurrence: US)
  Receive Date: 20160422
  Receipt Date: 20160812
  Transmission Date: 20161109
  Serious: Yes (Other)
  Sender: FDA-Public Use
  Company Number: US-BRISTOL-MYERS SQUIBB COMPANY-BMS-2016-029035

PATIENT
  Sex: Male
  Weight: 72.56 kg

DRUGS (13)
  1. MVI                                /01825701/ [Concomitant]
     Active Substance: VITAMINS
     Indication: PRODUCT USED FOR UNKNOWN INDICATION
     Route: 065
  2. OPDIVO [Suspect]
     Active Substance: NIVOLUMAB
     Dosage: 100 MG, UNK
     Route: 042
     Dates: start: 20160208
  3. IBUPROFEN. [Concomitant]
     Active Substance: IBUPROFEN
     Indication: PRODUCT USED FOR UNKNOWN INDICATION
     Route: 065
  4. OPDIVO [Suspect]
     Active Substance: NIVOLUMAB
     Dosage: 100 MG, UNK
     Route: 042
     Dates: start: 20151216
  5. OPDIVO [Suspect]
     Active Substance: NIVOLUMAB
     Dosage: 171 MG, UNK
     Route: 042
     Dates: start: 20151228
  6. CIPRO [Concomitant]
     Active Substance: CIPROFLOXACIN HYDROCHLORIDE
     Indication: PRODUCT USED FOR UNKNOWN INDICATION
     Route: 065
  7. OPDIVO [Suspect]
     Active Substance: NIVOLUMAB
     Dosage: 230 MG, UNK
     Route: 042
     Dates: start: 20160208
  8. OPDIVO [Suspect]
     Active Substance: NIVOLUMAB
     Dosage: 171 MG, UNK
     Route: 042
     Dates: start: 20160120
  9. FENTANYL. [Concomitant]
     Active Substance: FENTANYL
     Indication: PRODUCT USED FOR UNKNOWN INDICATION
     Route: 065
  10. OPDIVO [Suspect]
     Active Substance: NIVOLUMAB
     Indication: TRANSITIONAL CELL CARCINOMA
     Dosage: 230 MG, UNK
     Route: 042
     Dates: start: 20151113
  11. OPDIVO [Suspect]
     Active Substance: NIVOLUMAB
     Dosage: 235 MG, UNK
     Route: 042
     Dates: start: 20151130
  12. GABAPENTIN. [Concomitant]
     Active Substance: GABAPENTIN
     Indication: PRODUCT USED FOR UNKNOWN INDICATION
     Route: 065
  13. VICODIN [Concomitant]
     Active Substance: ACETAMINOPHEN\HYDROCODONE BITARTRATE
     Indication: PRODUCT USED FOR UNKNOWN INDICATION
     Route: 065

REACTIONS (3)
  - Blister [Unknown]
  - Product use issue [Unknown]
  - Neurotoxicity [Unknown]
